FAERS Safety Report 7230319-0 (Version None)
Quarter: 2011Q1

REPORT INFORMATION
  Report Type: 
  Country: None (occurrence: None)
  Receive Date: 20110118
  Receipt Date: 20110114
  Transmission Date: 20110831
  Serious: No
  Sender: FDA-Public Use
  Company Number: US-PFIZER INC-2010149480

PATIENT

DRUGS (1)
  1. LYRICA [Suspect]
     Dosage: 50 MG, 3X/DAY

REACTIONS (2)
  - INSOMNIA [None]
  - AGITATION [None]
